FAERS Safety Report 6892284 (Version 3)
Quarter: 2012Q4

REPORT INFORMATION
  Report Type: 
  Country: CN (occurrence: CN)
  Receive Date: 20090126
  Receipt Date: 20121217
  Transmission Date: 20130627
  Serious: Yes (Other)
  Sender: FDA-Public Use
  Company Number: PHHY2009CN01257

PATIENT
  Age: 26 Year
  Sex: Male

DRUGS (1)
  1. SEBIVO [Suspect]
     Indication: CHRONIC HEPATITIS B
     Dosage: 600 mg, QD
     Route: 048
     Dates: start: 20080130, end: 20090130

REACTIONS (5)
  - Blood lactate dehydrogenase increased [Recovering/Resolving]
  - Blood uric acid increased [Recovering/Resolving]
  - Blood creatine phosphokinase increased [Recovering/Resolving]
  - Blood creatine phosphokinase MB increased [Recovering/Resolving]
  - Hypoaesthesia [Recovering/Resolving]
